FAERS Safety Report 5978090-4 (Version None)
Quarter: 2008Q4

REPORT INFORMATION
  Report Type: 
  Country: None (occurrence: None)
  Receive Date: 20081126
  Receipt Date: 20081114
  Transmission Date: 20090506
  Serious: Yes (Other)
  Sender: FDA-Public Use
  Company Number: 2008S1020559

PATIENT
  Age: 63 Year
  Sex: Male

DRUGS (1)
  1. CIPROFLOXACIN [Suspect]
     Indication: URINARY TRACT INFECTION
     Dosage: 200 MG; DAILY; INTRAVENOUS
     Route: 042

REACTIONS (3)
  - BLOOD CREATININE INCREASED [None]
  - LEUKOCYTOSIS [None]
  - MYOCLONUS [None]
